FAERS Safety Report 8049311-1 (Version None)
Quarter: 2012Q1

REPORT INFORMATION
  Report Type: 
  Country: None (occurrence: None)
  Receive Date: 20120117
  Receipt Date: 20120109
  Transmission Date: 20120608
  Serious: Yes (Hospitalization)
  Sender: FDA-Public Use
  Company Number: FR-B.I. PHARMACEUTICALS,INC./RIDGEFIELD-2012-FF-00030FF

PATIENT
  Sex: Male

DRUGS (5)
  1. MICARDIS [Suspect]
     Dosage: 80 MG
     Route: 048
  2. DILTIAZEM HCL [Suspect]
     Dosage: 300 MG
     Route: 048
  3. MABCAMPATH [Suspect]
     Indication: CHRONIC LYMPHOCYTIC LEUKAEMIA
     Route: 042
     Dates: start: 20110510
  4. PLAVIX [Suspect]
     Dosage: 75 MG
     Route: 048
  5. VALACYCLOVIR HYDROCHLORIDE [Suspect]
     Dosage: 1000 MG
     Route: 048

REACTIONS (7)
  - PLEURAL EFFUSION [None]
  - COUGH [None]
  - INFLAMMATION [None]
  - PYREXIA [None]
  - LUNG NEOPLASM [None]
  - WHITE BLOOD CELL COUNT INCREASED [None]
  - LYMPHADENOPATHY [None]
